FAERS Safety Report 17455741 (Version 1)
Quarter: 2020Q1

REPORT INFORMATION
  Report Type: Spontaneous
  Country: US (occurrence: US)
  Receive Date: 20200225
  Receipt Date: 20200225
  Transmission Date: 20200409
  Serious: Yes (Other)
  Sender: FDA-Public Use
  Company Number: None

PATIENT
  Age: 81 Year
  Sex: Female

DRUGS (2)
  1. BEOVU [Suspect]
     Active Substance: BROLUCIZUMAB-DBLL
     Indication: NEOVASCULAR AGE-RELATED MACULAR DEGENERATION
     Dosage: ?          OTHER FREQUENCY:ONCE A MONTH;?
     Route: 047
     Dates: start: 20200110, end: 20200214
  2. BEOVU [Concomitant]
     Active Substance: BROLUCIZUMAB-DBLL
     Dates: start: 20200110, end: 20200214

REACTIONS (4)
  - Iridocyclitis [None]
  - Blindness [None]
  - Chorioretinitis [None]
  - Pain [None]

NARRATIVE: CASE EVENT DATE: 20200219
